FAERS Safety Report 9683245 (Version 1)
Quarter: 2013Q4

REPORT INFORMATION
  Report Type: Spontaneous
  Country: US (occurrence: US)
  Receive Date: 20131112
  Receipt Date: 20131112
  Transmission Date: 20140711
  Serious: Yes (Hospitalization)
  Sender: FDA-Public Use
  Company Number: US-BAXTER-2013BAX014589

PATIENT
  Age: 86 Year
  Sex: Male

DRUGS (5)
  1. DIANEAL LOW CALCIUM [Suspect]
     Indication: PERITONEAL DIALYSIS
     Route: 033
     Dates: start: 201208
  2. DIANEAL LOW CALCIUM [Suspect]
     Route: 033
     Dates: start: 201208
  3. DIANEAL LOW CALCIUM [Suspect]
     Indication: PERITONEAL DIALYSIS
     Route: 033
     Dates: start: 201208
  4. DIANEAL LOW CALCIUM [Suspect]
     Route: 033
     Dates: start: 201208
  5. DIANEAL LOW CALCIUM (ULTRABAG) [Suspect]
     Indication: PERITONEAL DIALYSIS
     Route: 033
     Dates: start: 200606, end: 201208

REACTIONS (1)
  - Fluid overload [Recovered/Resolved]
